FAERS Safety Report 16092558 (Version 1)
Quarter: 2019Q1

REPORT INFORMATION
  Report Type: Spontaneous
  Country: US (occurrence: US)
  Receive Date: 20190319
  Receipt Date: 20190319
  Transmission Date: 20190418
  Serious: No
  Sender: FDA-Public Use
  Company Number: PHEH2019US011121

PATIENT
  Age: 64 Year
  Sex: Female

DRUGS (1)
  1. FEMARA [Suspect]
     Active Substance: LETROZOLE
     Indication: PRODUCT USED FOR UNKNOWN INDICATION
     Dosage: 2.5 MG, QD
     Route: 065

REACTIONS (10)
  - Decreased appetite [Unknown]
  - Cough [Unknown]
  - Urine odour abnormal [Unknown]
  - Ketonuria [Unknown]
  - Vomiting [Unknown]
  - Fatigue [Unknown]
  - Proteinuria [Unknown]
  - Nausea [Unknown]
  - Bilirubinuria [Unknown]
  - Dizziness [Unknown]
